FAERS Safety Report 8849194 (Version 3)
Quarter: 2012Q4

REPORT INFORMATION
  Report Type: 
  Country: US (occurrence: None)
  Receive Date: 20121018
  Receipt Date: 20121214
  Transmission Date: 20130627
  Serious: Yes (Hospitalization, Other)
  Sender: FDA-Public Use
  Company Number: None

PATIENT
  Age: 80 Year
  Sex: Male
  Weight: 81.1 kg

DRUGS (4)
  1. METHYLPREDNISOLONE [Suspect]
     Indication: LUMBAR SPONDYLOSIS
     Route: 008
     Dates: start: 20120801, end: 20120801
  2. METHYLPREDNISOLONE [Suspect]
     Indication: ARTHRITIS
     Route: 008
     Dates: start: 20120801, end: 20120801
  3. METHYLPREDNISOLONE [Suspect]
     Indication: LUMBAR SPONDYLOSIS
     Dosage: 1.5 once Epidural
     Route: 008
     Dates: start: 20120919, end: 20120919
  4. METHYLPREDNISOLONE [Suspect]
     Indication: ARTHRITIS
     Dosage: 1.5 once Epidural
     Route: 008
     Dates: start: 20120919, end: 20120919

REACTIONS (6)
  - Malaise [None]
  - Headache [None]
  - CSF white blood cell count increased [None]
  - CSF protein increased [None]
  - Red blood cells CSF positive [None]
  - Meningitis [None]
